FAERS Safety Report 21978118 (Version 3)
Quarter: 2024Q3

REPORT INFORMATION
  Report Type: Spontaneous
  Country: US (occurrence: US)
  Receive Date: 20230210
  Receipt Date: 20240822
  Transmission Date: 20241017
  Serious: No
  Sender: LUPIN
  Company Number: US-LUPIN PHARMACEUTICALS INC.-2023-00829

PATIENT

DRUGS (1)
  1. ALBUTEROL SULFATE [Suspect]
     Active Substance: ALBUTEROL SULFATE
     Indication: Asthma
     Dosage: 1-2 PUFFS AS NEEDED EVERY 4-6 HOURS

REACTIONS (4)
  - Cough [Unknown]
  - Illness [Unknown]
  - Drug dose omission by device [Unknown]
  - Device delivery system issue [Unknown]
